FAERS Safety Report 25780956 (Version 2)
Quarter: 2025Q4

REPORT INFORMATION
  Report Type: Report from Study
  Country: CA (occurrence: CA)
  Receive Date: 20250909
  Receipt Date: 20251023
  Transmission Date: 20260118
  Serious: Yes (Hospitalization, Other)
  Sender: HLS THERAPEUTICS
  Company Number: CA-HLS-202502256

PATIENT
  Age: 56 Year
  Sex: Male

DRUGS (18)
  1. CLOZARIL [Suspect]
     Active Substance: CLOZAPINE
     Indication: Product used for unknown indication
     Route: 048
     Dates: start: 20131008
  2. CLOZARIL [Suspect]
     Active Substance: CLOZAPINE
     Indication: Product used for unknown indication
     Dosage: TWICE A DAY
     Route: 065
  3. ATROPINE [Concomitant]
     Active Substance: ATROPINE
     Indication: Product used for unknown indication
     Dosage: 1% SUBLINGUAL 2 DROP(S) SUBLINGUAL QHS X 4 WEEKS 2025/08/22 2026/08/21
     Route: 060
     Dates: start: 20250822
  4. PHENYTOIN SODIUM [Concomitant]
     Active Substance: PHENYTOIN SODIUM
     Indication: Product used for unknown indication
     Dosage: 100MG 3 TABLET(S) ORAL QHS X 1 WEEK
     Route: 048
     Dates: start: 20250822
  5. HALOPERIDOL [Concomitant]
     Active Substance: HALOPERIDOL
     Indication: Product used for unknown indication
     Dosage: 5 MG ORAL QID PRN X 4 WEEKS 2025/AUG/22 2025/OCT/17
     Route: 048
     Dates: start: 20250822
  6. LACTULOSE [Concomitant]
     Active Substance: LACTULOSE
     Indication: Product used for unknown indication
     Dosage: 10 GRAM/ 15 ML ORAL SOLUTION 30 ML 30 ML ORAL BID
     Route: 048
     Dates: start: 20250819
  7. HALOPERIDOL DECANOATE [Concomitant]
     Active Substance: HALOPERIDOL DECANOATE
     Indication: Product used for unknown indication
     Dosage: 100 MG/ML INJ 5 ML VIAL 300 MG INTRAMUSCULAR (IM) EVERY 4 WEEKS X 4 WEEKS 2025/AUG/22 2026/AUG/21
     Route: 030
     Dates: start: 20250822
  8. SENNOSIDES [Concomitant]
     Active Substance: SENNOSIDES
     Indication: Product used for unknown indication
     Dosage: 8.6 MG 2 TABLET(S) QAM
     Route: 065
     Dates: start: 20250819
  9. CHOLECALCIFEROL [Concomitant]
     Active Substance: CHOLECALCIFEROL
     Indication: Product used for unknown indication
     Dosage: 1000 UNIT (25 MCG) TABLET 2000 UNIT 2 TABLET(S) QAM
     Route: 065
     Dates: start: 20250819
  10. ACETAMINOPHEN [Concomitant]
     Active Substance: ACETAMINOPHEN
     Indication: Product used for unknown indication
     Dosage: 325 MG TABLETS 650 MG 2 TABLET(S) ORAL PRN
     Route: 048
     Dates: start: 20250819
  11. BISACODYL [Concomitant]
     Active Substance: BISACODYL
     Indication: Product used for unknown indication
     Dosage: 5MG 2 TABLET(S) ORAL PRN
     Route: 065
     Dates: start: 20250819
  12. CLOBAZAM [Concomitant]
     Active Substance: CLOBAZAM
     Indication: Product used for unknown indication
     Dosage: 10MG 1 TABLET(S) ORAL BID X 1 WEEK THEN 2 TABLET(S) ORAL QHS X 1 WEEK
     Route: 065
     Dates: start: 20250822
  13. CLONAZEPAM [Concomitant]
     Active Substance: CLONAZEPAM
     Indication: Product used for unknown indication
     Dosage: 0.5MG 1 TABLET(S) ORAL Q12H X 1 WEEK
     Route: 048
     Dates: start: 20250822
  14. LORAZEPAM [Concomitant]
     Active Substance: LORAZEPAM
     Indication: Product used for unknown indication
     Dosage: SUBLINGUAL 2MG 1 TABLET(S) SUBLINGUAL Q4-6H PRN X 4 WEEKS 2025/08/22 2025/10/17
     Route: 060
     Dates: start: 20250822
  15. BENZTROPINE [Concomitant]
     Active Substance: BENZTROPINE
     Indication: Product used for unknown indication
     Dosage: 1 MG 1 TABLET(S) ORAL QAM X 1 WEEK 2025/08/22 2026/08/21
     Route: 048
     Dates: start: 20250822
  16. GABAPENTIN [Concomitant]
     Active Substance: GABAPENTIN
     Indication: Product used for unknown indication
     Dosage: 300MG 1 CAPSULE(S) ORAL TID
     Route: 048
     Dates: start: 20250819
  17. CYANOCOBALAMIN [Concomitant]
     Active Substance: CYANOCOBALAMIN
     Indication: Product used for unknown indication
     Dosage: 1000 MCG TABLET 1 TABLET(S) ORAL QD
     Route: 048
     Dates: start: 20250819
  18. CLOZAPINE [Concomitant]
     Active Substance: CLOZAPINE
     Indication: Product used for unknown indication
     Dosage: 25MG 10 TABLET(S) ORAL BID
     Route: 048
     Dates: start: 20250822

REACTIONS (9)
  - Treatment noncompliance [Unknown]
  - Cough [Unknown]
  - Pyrexia [Unknown]
  - Hypotension [Unknown]
  - Product dose omission issue [Unknown]
  - Pneumonia [Unknown]
  - Psychotic disorder [Unknown]
  - Seizure [Recovered/Resolved]
  - Sepsis [Unknown]

NARRATIVE: CASE EVENT DATE: 20230101
